FAERS Safety Report 9785122 (Version 1)
Quarter: 2013Q4

REPORT INFORMATION
  Report Type: Spontaneous
  Country: US (occurrence: US)
  Receive Date: 20131227
  Receipt Date: 20131227
  Transmission Date: 20140711
  Serious: Yes (Hospitalization, Other)
  Sender: FDA-Public Use
  Company Number: US-SUN PHARMACEUTICAL INDUSTRIES LTD-2013SUN05280

PATIENT
  Age: 47 Year
  Sex: Female
  Weight: 110 kg

DRUGS (3)
  1. AMLODIPINE BESYLATE 5 MG TABLET [Suspect]
     Indication: PRODUCT USED FOR UNKNOWN INDICATION
     Dosage: 5 MG, OD
     Route: 048
  2. ZIPRASIDONE [Concomitant]
     Dosage: 60 MG, QD
     Route: 048
  3. PREGABALIN [Concomitant]
     Dosage: 150 MG, QD
     Route: 048

REACTIONS (4)
  - Shock [Recovered/Resolved]
  - Hypotension [Recovered/Resolved]
  - Haemodynamic instability [Recovered/Resolved]
  - Intentional overdose [Unknown]
